FAERS Safety Report 12651234 (Version 3)
Quarter: 2016Q3

REPORT INFORMATION
  Report Type: Spontaneous
  Country: US (occurrence: US)
  Receive Date: 20160815
  Receipt Date: 20160907
  Transmission Date: 20161109
  Serious: Yes (Other)
  Sender: FDA-Public Use
  Company Number: US-ELI_LILLY_AND_COMPANY-US201607004540

PATIENT
  Age: 23 Year
  Sex: Male
  Weight: 71.66 kg

DRUGS (4)
  1. REMODULIN [Suspect]
     Active Substance: TREPROSTINIL
     Dosage: 120NG/KG/MIN, CONTINUOUS
     Route: 042
     Dates: start: 20131017
  2. ADCIRCA [Suspect]
     Active Substance: TADALAFIL
     Indication: PRODUCT USED FOR UNKNOWN INDICATION
     Dosage: UNK, UNKNOWN
     Route: 065
     Dates: start: 20160620
  3. REMODULIN [Suspect]
     Active Substance: TREPROSTINIL
     Indication: PULMONARY ARTERIAL HYPERTENSION
     Dosage: 106 NG/KG/MIN, CONTINUOUS
     Route: 042
     Dates: start: 20131017
  4. LETAIRIS [Suspect]
     Active Substance: AMBRISENTAN
     Indication: PRODUCT USED FOR UNKNOWN INDICATION
     Dosage: 10 MG, QD
     Dates: start: 20130522

REACTIONS (5)
  - Pulmonary arterial hypertension [Unknown]
  - Pain [Unknown]
  - Chest pain [Unknown]
  - Headache [Unknown]
  - Terminal state [Unknown]

NARRATIVE: CASE EVENT DATE: 201606
